FAERS Safety Report 9931489 (Version 1)
Quarter: 2014Q1

REPORT INFORMATION
  Report Type: Report from Study
  Country: US (occurrence: US)
  Receive Date: 20140228
  Receipt Date: 20140228
  Transmission Date: 20141002
  Serious: Yes (Other)
  Sender: FDA-Public Use
  Company Number: US-ROCHE-1348829

PATIENT
  Sex: Female

DRUGS (2)
  1. AVASTIN [Suspect]
     Indication: DIABETIC RETINOPATHY
     Route: 065
  2. AVASTIN [Suspect]
     Indication: DIABETIC RETINAL OEDEMA

REACTIONS (3)
  - Diabetic retinal oedema [Unknown]
  - Diabetic retinopathy [Unknown]
  - Off label use [Unknown]
